FAERS Safety Report 14356934 (Version 4)
Quarter: 2018Q3

REPORT INFORMATION
  Report Type: Report from Study
  Country: US (occurrence: US)
  Receive Date: 20180105
  Receipt Date: 20180719
  Transmission Date: 20181010
  Serious: No
  Sender: FDA-Public Use
  Company Number: US-AMGEN-USASL2017169171

PATIENT
  Age: 77 Year
  Sex: Female

DRUGS (2)
  1. REPATHA [Suspect]
     Active Substance: EVOLOCUMAB
     Indication: BLOOD CHOLESTEROL INCREASED
     Dosage: 140 MG, Q2WK
     Route: 065
  2. REPATHA [Suspect]
     Active Substance: EVOLOCUMAB
     Indication: HYPERCHOLESTEROLAEMIA

REACTIONS (7)
  - Throat irritation [Unknown]
  - Pharyngeal erythema [Unknown]
  - Influenza [Unknown]
  - Sinusitis [Unknown]
  - Pharyngitis [Unknown]
  - Back pain [Unknown]
  - Dysgeusia [Unknown]

NARRATIVE: CASE EVENT DATE: 201801
